FAERS Safety Report 12222892 (Version 1)
Quarter: 2016Q1

REPORT INFORMATION
  Report Type: Spontaneous
  Country: US (occurrence: US)
  Receive Date: 20160330
  Receipt Date: 20160330
  Transmission Date: 20160526
  Serious: No
  Sender: FDA-Public Use
  Company Number: US-PERRIGO-15US003790

PATIENT
  Age: 92 Year
  Sex: Female
  Weight: 55.78 kg

DRUGS (9)
  1. ACETAMINOPHEN. [Suspect]
     Active Substance: ACETAMINOPHEN
     Indication: MUSCULOSKELETAL CHEST PAIN
     Dosage: 650 TO 1300 MG, PRN
     Route: 048
     Dates: start: 20150402
  2. THYROXINE [Concomitant]
     Active Substance: LEVOTHYROXINE
     Indication: HYPOTHYROIDISM
     Dosage: UNK
     Route: 065
  3. LEVOBUNOLOL [Concomitant]
     Active Substance: LEVOBUNOLOL
     Indication: GLAUCOMA
     Dosage: UNK
     Route: 065
  4. CIPROFLOXACIN. [Concomitant]
     Active Substance: CIPROFLOXACIN
     Indication: CYSTITIS
     Dosage: UNK
     Route: 065
     Dates: start: 20150402
  5. DULCOLAX (BISACODYL) [Suspect]
     Active Substance: BISACODYL
     Indication: CONSTIPATION
     Dosage: UNKNOWN, DAILY
     Route: 048
  6. AMLODIPINE [Concomitant]
     Active Substance: AMLODIPINE BESYLATE
     Indication: HYPERTENSION
     Dosage: UNK
     Route: 065
  7. PRAVASTATIN [Concomitant]
     Active Substance: PRAVASTATIN\PRAVASTATIN SODIUM
     Indication: BLOOD CHOLESTEROL INCREASED
     Dosage: UNK
     Route: 065
  8. CALCIUM [Concomitant]
     Active Substance: CALCIUM
     Indication: ROUTINE HEALTH MAINTENANCE
     Dosage: UNK
     Route: 065
  9. TRAVATAN Z [Concomitant]
     Active Substance: TRAVOPROST
     Indication: GLAUCOMA
     Dosage: UNK
     Route: 065

REACTIONS (3)
  - Underdose [Unknown]
  - Bowel movement irregularity [Recovered/Resolved]
  - Faeces discoloured [Not Recovered/Not Resolved]

NARRATIVE: CASE EVENT DATE: 201504
